FAERS Safety Report 6613846-6 (Version None)
Quarter: 2010Q1

REPORT INFORMATION
  Report Type: 
  Country: None (occurrence: None)
  Receive Date: 20100304
  Receipt Date: 20100224
  Transmission Date: 20100710
  Serious: Yes (Other)
  Sender: FDA-Public Use
  Company Number: US-BRISTOL-MYERS SQUIBB COMPANY-14991038

PATIENT
  Age: 72 Year

DRUGS (4)
  1. ETOPOSIDE [Suspect]
     Indication: LYMPHOMA
  2. DIFLUCAN [Concomitant]
  3. FAMVIR [Concomitant]
  4. INSULIN [Concomitant]

REACTIONS (2)
  - GANGRENE [None]
  - PERIPHERAL ISCHAEMIA [None]
